FAERS Safety Report 16671690 (Version 1)
Quarter: 2019Q3

REPORT INFORMATION
  Report Type: Spontaneous
  Country: US (occurrence: US)
  Receive Date: 20190806
  Receipt Date: 20190806
  Transmission Date: 20191004
  Serious: Yes (Hospitalization, Other)
  Sender: FDA-Public Use
  Company Number: US-JAZZ-2013-US-000174

PATIENT
  Sex: Female

DRUGS (4)
  1. XYREM [Suspect]
     Active Substance: SODIUM OXYBATE
     Indication: CATAPLEXY
     Dosage: 3.0 G, BID
     Route: 048
     Dates: start: 20050511
  2. XYREM [Suspect]
     Active Substance: SODIUM OXYBATE
     Dosage: 4.0 G, TID
     Route: 048
     Dates: start: 20071116
  3. XYREM [Suspect]
     Active Substance: SODIUM OXYBATE
     Dosage: 4.5 G, BID
     Route: 048
     Dates: start: 20050607
  4. XYREM [Suspect]
     Active Substance: SODIUM OXYBATE
     Indication: NARCOLEPSY
     Dosage: 1.5 G, BID
     Route: 048
     Dates: start: 20050411

REACTIONS (5)
  - Cellulitis [Unknown]
  - Peripheral vascular disorder [Unknown]
  - Paralysis [Unknown]
  - Feeling abnormal [Unknown]
  - Fear [Unknown]

NARRATIVE: CASE EVENT DATE: 2013
